FAERS Safety Report 6188704-4 (Version None)
Quarter: 2009Q2

REPORT INFORMATION
  Report Type: 
  Country: None (occurrence: None)
  Receive Date: 20090513
  Receipt Date: 20090501
  Transmission Date: 20091009
  Serious: Yes (Other)
  Sender: FDA-Public Use
  Company Number: US-JNJCH-2009012272

PATIENT
  Age: 30 Year
  Sex: Male
  Weight: 68 kg

DRUGS (2)
  1. BENADRYL [Suspect]
     Indication: HYPERSENSITIVITY
     Dosage: TEXT:2 TABLETS ONCE
     Route: 048
     Dates: start: 20090430, end: 20090430
  2. NYQUIL NIGHTTIME COLD/FLU MEDICINE [Suspect]
     Indication: NASOPHARYNGITIS
     Dosage: TEXT:TWO LIQUICAPS ONCE
     Route: 048

REACTIONS (7)
  - ABASIA [None]
  - CONDITION AGGRAVATED [None]
  - ERYTHEMA [None]
  - OEDEMA PERIPHERAL [None]
  - PAIN IN EXTREMITY [None]
  - PRURITUS [None]
  - URTICARIA [None]
